FAERS Safety Report 5403257-3 (Version None)
Quarter: 2007Q3

REPORT INFORMATION
  Report Type: 
  Country: None (occurrence: None)
  Receive Date: 20070727
  Receipt Date: 20070712
  Transmission Date: 20080115
  Serious: Yes (Hospitalization)
  Sender: FDA-Public Use
  Company Number: 2007001287

PATIENT
  Age: 43 Year
  Sex: Female

DRUGS (1)
  1. ERLOTINIB / PLACEBO (TABLET) [Suspect]
     Indication: SQUAMOUS CELL CARCINOMA
     Dosage: 150 MG (QD), ORAL
     Route: 048

REACTIONS (1)
  - MENTAL STATUS CHANGES [None]
